FAERS Safety Report 9378062 (Version 10)
Quarter: 2014Q1

REPORT INFORMATION
  Report Type: Spontaneous
  Country: US (occurrence: US)
  Receive Date: 20130701
  Receipt Date: 20140217
  Transmission Date: 20141002
  Serious: Yes (Hospitalization)
  Sender: FDA-Public Use
  Company Number: US-GLAXOSMITHKLINE-A1027283A

PATIENT
  Age: 25 Year
  Sex: Male

DRUGS (4)
  1. INFLUENZA VACCINE UNSPECIFIED 2013-2014 SEASON [Suspect]
     Indication: PROPHYLAXIS
     Route: 065
     Dates: start: 2013, end: 2013
  2. FLOLAN [Suspect]
     Indication: PULMONARY ARTERIAL HYPERTENSION
     Dosage: 38.54NGKM CONTINUOUS
     Route: 042
     Dates: start: 20130515
  3. ADCIRCA [Concomitant]
  4. REMODULIN [Concomitant]

REACTIONS (24)
  - Investigation [Unknown]
  - Injection site cellulitis [Unknown]
  - Streptococcal infection [Unknown]
  - Pyrexia [Unknown]
  - Arthralgia [Unknown]
  - Sunburn [Unknown]
  - Flushing [Unknown]
  - Medical device complication [Unknown]
  - Musculoskeletal pain [Not Recovered/Not Resolved]
  - Cough [Unknown]
  - Dyspnoea [Unknown]
  - Catheter site inflammation [Unknown]
  - Infection [Unknown]
  - Device related infection [Unknown]
  - Device leakage [Unknown]
  - Central venous catheterisation [Unknown]
  - Device damage [Unknown]
  - Catheter site erythema [Unknown]
  - Diarrhoea [Unknown]
  - Pain in jaw [Not Recovered/Not Resolved]
  - Catheter site pain [Unknown]
  - Abdominal pain [Unknown]
  - Abasia [Unknown]
  - Impaired work ability [Unknown]
